FAERS Safety Report 18334139 (Version 1)
Quarter: 2020Q4

REPORT INFORMATION
  Report Type: Spontaneous
  Country: FR (occurrence: FR)
  Receive Date: 20201001
  Receipt Date: 20201001
  Transmission Date: 20210113
  Serious: Yes (Hospitalization)
  Sender: FDA-Public Use
  Company Number: FR-ABBVIE-20K-056-3585496-00

PATIENT
  Age: 58 Year
  Sex: Male
  Weight: 60 kg

DRUGS (5)
  1. EPHEDRINE. [Suspect]
     Active Substance: EPHEDRINE
     Indication: INDUCTION OF ANAESTHESIA
     Route: 042
     Dates: start: 20190703, end: 20190703
  2. XYLOCAINE [Suspect]
     Active Substance: LIDOCAINE HYDROCHLORIDE
     Indication: INDUCTION OF ANAESTHESIA
     Route: 042
     Dates: start: 20190703, end: 20190703
  3. PROPOFOL. [Suspect]
     Active Substance: PROPOFOL
     Indication: INDUCTION OF ANAESTHESIA
     Route: 042
     Dates: start: 20190703, end: 20190703
  4. SEVOFLURANE. [Suspect]
     Active Substance: SEVOFLURANE
     Indication: INDUCTION OF ANAESTHESIA
     Route: 042
     Dates: start: 20190603, end: 20190603
  5. CHLORURE DE SUXAMETHONIUM [Suspect]
     Active Substance: SUCCINYLCHOLINE CHLORIDE
     Indication: INDUCTION OF ANAESTHESIA
     Route: 042
     Dates: start: 20190703, end: 20190703

REACTIONS (1)
  - Anaphylactic shock [Recovered/Resolved with Sequelae]

NARRATIVE: CASE EVENT DATE: 20190603
